FAERS Safety Report 9708762 (Version 1)
Quarter: 2013Q4

REPORT INFORMATION
  Report Type: Spontaneous
  Country: NL (occurrence: NL)
  Receive Date: 20131125
  Receipt Date: 20131125
  Transmission Date: 20140711
  Serious: Yes (Death, Other)
  Sender: FDA-Public Use
  Company Number: NL-GLAXOSMITHKLINE-B0947384A

PATIENT
  Sex: 0

DRUGS (1)
  1. SEROXAT [Suspect]
     Indication: DEPRESSION
     Route: 064

REACTIONS (3)
  - Foetal death [Fatal]
  - Umbilical cord thrombosis [Unknown]
  - Foetal exposure during pregnancy [Unknown]
